FAERS Safety Report 6801285-4 (Version None)
Quarter: 2010Q2

REPORT INFORMATION
  Report Type: 
  Country: None (occurrence: None)
  Receive Date: 20100629
  Receipt Date: 20100525
  Transmission Date: 20101027
  Serious: No
  Sender: FDA-Public Use
  Company Number: A0861242A

PATIENT
  Age: 48 Year
  Sex: Female

DRUGS (16)
  1. LAMICTAL [Suspect]
     Indication: PARTIAL SEIZURES
     Dosage: 25MG PER DAY
     Route: 048
     Dates: start: 20100514, end: 20100515
  2. FENTANYL [Concomitant]
     Route: 062
  3. LEVOTHYROXINE SODIUM [Concomitant]
  4. DIAZEPAM [Concomitant]
  5. CARISOPRODOL [Concomitant]
  6. UNSPECIFIED MEDICATION [Concomitant]
  7. OXYCODONE HCL [Concomitant]
  8. DIPHENHYDRAMINE [Concomitant]
  9. MUCINEX [Concomitant]
  10. VITAMIN D [Concomitant]
  11. 5-HTP [Concomitant]
  12. VITAMIN B-12 [Concomitant]
     Route: 060
  13. VITAMIN B COMPLEX WITH C [Concomitant]
  14. VITAMIN C WITH ROSE HIPS [Concomitant]
  15. LOVAZA [Concomitant]
  16. PIRACETAM [Concomitant]

REACTIONS (18)
  - AGITATION [None]
  - ASTHENIA [None]
  - BURNING SENSATION [None]
  - DECREASED APPETITE [None]
  - ERYTHEMA [None]
  - FEELING ABNORMAL [None]
  - HEADACHE [None]
  - HYPERKERATOSIS [None]
  - INSOMNIA [None]
  - LISTLESS [None]
  - MIGRAINE [None]
  - MYALGIA [None]
  - PURULENT DISCHARGE [None]
  - RASH [None]
  - RASH MACULAR [None]
  - RESTLESSNESS [None]
  - SKIN EXFOLIATION [None]
  - THINKING ABNORMAL [None]
